FAERS Safety Report 15571507 (Version 1)
Quarter: 2018Q4

REPORT INFORMATION
  Report Type: Report from Study
  Country: US (occurrence: US)
  Receive Date: 20181031
  Receipt Date: 20181031
  Transmission Date: 20190205
  Serious: Yes (Other)
  Sender: FDA-Public Use
  Company Number: US-BRISTOL-MYERS SQUIBB COMPANY-BMS-2018-101290

PATIENT
  Sex: Female
  Weight: 81.18 kg

DRUGS (2)
  1. APIXABAN [Suspect]
     Active Substance: APIXABAN
     Indication: CEREBROVASCULAR ACCIDENT PROPHYLAXIS
     Dosage: 5 MG, BID
     Route: 048
     Dates: start: 20180708
  2. LOSARTAN. [Concomitant]
     Active Substance: LOSARTAN
     Indication: PRODUCT USED FOR UNKNOWN INDICATION
     Dosage: 50 MG, UNK
     Route: 065

REACTIONS (10)
  - Hip fracture [Unknown]
  - Alopecia [Unknown]
  - Migraine [Unknown]
  - Renal disorder [Unknown]
  - Patella fracture [Unknown]
  - Cough [Unknown]
  - Memory impairment [Unknown]
  - Fall [Unknown]
  - Goitre [Unknown]
  - Dizziness [Unknown]
